FAERS Safety Report 11226502 (Version 1)
Quarter: 2015Q2

REPORT INFORMATION
  Report Type: Spontaneous
  Country: NL (occurrence: NL)
  Receive Date: 20150629
  Receipt Date: 20150629
  Transmission Date: 20150821
  Serious: Yes (Other)
  Sender: FDA-Public Use
  Company Number: NL-AMGEN-NLDSP2015063514

PATIENT
  Age: 62 Year
  Sex: Male
  Weight: 63 kg

DRUGS (2)
  1. ENBREL [Suspect]
     Active Substance: ETANERCEPT
     Indication: RHEUMATOID ARTHRITIS
     Dosage: 50 MG, WEEKLY
     Route: 065
     Dates: start: 20150506, end: 20150516
  2. ENBREL [Suspect]
     Active Substance: ETANERCEPT
     Dosage: UNK
     Route: 065
     Dates: start: 20150523

REACTIONS (2)
  - Respiratory tract infection [Recovered/Resolved]
  - Cystitis [Recovered/Resolved]

NARRATIVE: CASE EVENT DATE: 20150516
